FAERS Safety Report 10208124 (Version 2)
Quarter: 2014Q2

REPORT INFORMATION
  Report Type: Spontaneous
  Country: US (occurrence: US)
  Receive Date: 20140530
  Receipt Date: 20140530
  Transmission Date: 20141212
  Serious: Yes (Other)
  Sender: FDA-Public Use
  Company Number: US-NAPPMUNDI-USA-2013-0102997

PATIENT
  Age: 23 Year
  Sex: Female

DRUGS (1)
  1. MS CONTIN TABLETS [Suspect]
     Indication: DRUG ABUSE
     Dosage: UNK
     Route: 051

REACTIONS (1)
  - Drug abuse [Unknown]
